FAERS Safety Report 12475600 (Version 1)
Quarter: 2016Q2

REPORT INFORMATION
  Report Type: Spontaneous
  Country: US (occurrence: US)
  Receive Date: 20160617
  Receipt Date: 20160617
  Transmission Date: 20160815
  Serious: Yes (Other)
  Sender: FDA-Public Use
  Company Number: US-ENDO PHARMACEUTICALS INC.-2016-003207

PATIENT
  Age: 41 Year
  Sex: Male
  Weight: 90.8 kg

DRUGS (2)
  1. XIAFLEX [Suspect]
     Active Substance: COLLAGENASE CLOSTRIDIUM HISTOLYTICUM
     Route: 026
     Dates: start: 20160425
  2. XIAFLEX [Suspect]
     Active Substance: COLLAGENASE CLOSTRIDIUM HISTOLYTICUM
     Indication: PEYRONIE^S DISEASE
     Route: 026
     Dates: start: 20160428, end: 20160428

REACTIONS (6)
  - Penile haemorrhage [Recovering/Resolving]
  - Penile haematoma [Recovering/Resolving]
  - Fracture of penis [Recovering/Resolving]
  - Penile swelling [Recovering/Resolving]
  - Penis disorder [Recovering/Resolving]
  - Penile pain [Recovering/Resolving]

NARRATIVE: CASE EVENT DATE: 20160429
